FAERS Safety Report 5817556-4 (Version None)
Quarter: 2008Q3

REPORT INFORMATION
  Report Type: 
  Country: None (occurrence: None)
  Receive Date: 20080722
  Receipt Date: 20080717
  Transmission Date: 20090109
  Serious: Yes (Hospitalization)
  Sender: FDA-Public Use
  Company Number: DK-BRISTOL-MYERS SQUIBB COMPANY-14242242

PATIENT
  Age: 21 Year
  Sex: Female

DRUGS (5)
  1. ABATACEPT [Suspect]
     Indication: CROHN'S DISEASE
     Dates: start: 20070801, end: 20080626
  2. TRAMADOL HCL [Concomitant]
     Dates: start: 20070411
  3. IRON [Concomitant]
     Dates: start: 20050706
  4. SELEXID [Concomitant]
     Dates: start: 20080508, end: 20080516
  5. PENICILLIN [Concomitant]
     Dates: start: 20080516

REACTIONS (1)
  - CROHN'S DISEASE [None]
